FAERS Safety Report 10683631 (Version 5)
Quarter: 2015Q2

REPORT INFORMATION
  Report Type: Spontaneous
  Country: US (occurrence: US)
  Receive Date: 20141230
  Receipt Date: 20150527
  Transmission Date: 20150821
  Serious: Yes (Hospitalization, Other)
  Sender: FDA-Public Use
  Company Number: US-INCYTE CORPORATION-2014IN003982

PATIENT
  Age: 77 Year
  Sex: Male
  Weight: 84.63 kg

DRUGS (5)
  1. ALLOPURINOL. [Concomitant]
     Active Substance: ALLOPURINOL
     Indication: CHONDROCALCINOSIS PYROPHOSPHATE
     Dosage: 300 MG, QD
     Route: 048
     Dates: start: 199306
  2. LYRICA [Concomitant]
     Active Substance: PREGABALIN
     Indication: NEUROPATHY PERIPHERAL
     Dosage: 200 MG, BID
     Route: 048
     Dates: start: 20110131
  3. JAKAFI [Suspect]
     Active Substance: RUXOLITINIB
     Indication: MYELOFIBROSIS
     Dosage: 20 MG, BID
     Route: 048
     Dates: start: 201411, end: 201412
  4. JAKAFI [Suspect]
     Active Substance: RUXOLITINIB
     Dosage: 10 MG, BID
     Route: 048
     Dates: start: 20141223
  5. ASA [Concomitant]
     Active Substance: ASPIRIN
     Indication: PROPHYLAXIS
     Dosage: 81 MG, QD
     Dates: start: 2000

REACTIONS (22)
  - Gastrointestinal haemorrhage [Recovered/Resolved]
  - Anaemia [Recovering/Resolving]
  - Diverticulum [Unknown]
  - Blood glucose increased [Not Recovered/Not Resolved]
  - Blood potassium decreased [Not Recovered/Not Resolved]
  - Blood count abnormal [Recovering/Resolving]
  - Nausea [Unknown]
  - Diarrhoea [Unknown]
  - Portal hypertensive gastropathy [Recovered/Resolved]
  - Splenomegaly [Unknown]
  - Vomiting [Unknown]
  - Asthenia [Unknown]
  - Portal hypertension [Unknown]
  - Blood lactate dehydrogenase increased [Unknown]
  - Haemoglobin decreased [Recovering/Resolving]
  - Haemorrhoids [Unknown]
  - Hypotension [Unknown]
  - Varices oesophageal [Unknown]
  - Blood bilirubin increased [Unknown]
  - Hepatic cirrhosis [Unknown]
  - Platelet count decreased [Recovering/Resolving]
  - Prothrombin time prolonged [Unknown]

NARRATIVE: CASE EVENT DATE: 20141220
